FAERS Safety Report 8987085 (Version 2)
Quarter: 2013Q1

REPORT INFORMATION
  Report Type: Spontaneous
  Country: DE (occurrence: DE)
  Receive Date: 20121227
  Receipt Date: 20130104
  Transmission Date: 20140127
  Serious: Yes (Hospitalization)
  Sender: FDA-Public Use
  Company Number: DE-AMGEN-DEUSP2012082153

PATIENT
  Sex: Female

DRUGS (11)
  1. PEGFILGRASTIM [Suspect]
     Indication: B-CELL LYMPHOMA
     Dosage: 6 MG, 1X/D
     Route: 058
     Dates: start: 20120428
  2. VINCRISTINE [Suspect]
     Indication: B-CELL LYMPHOMA
     Dosage: 3.4 MG, 1 TIMES IN 14 DAYS
     Route: 042
     Dates: start: 20120425, end: 20120702
  3. RITUXIMAB [Suspect]
     Indication: B-CELL LYMPHOMA
     Dosage: 700 MG, 1 IN 14 DAYS
     Route: 042
     Dates: start: 20120424
  4. CYCLOPHOSPHAMIDE [Concomitant]
     Indication: B-CELL LYMPHOMA
     Dosage: 1240 MG, 1 TIMES IN 14 DAYS
     Route: 042
     Dates: start: 20120425
  5. DOXORUBICIN [Concomitant]
     Indication: B-CELL LYMPHOMA
     Dosage: 82 MG, 1 TIMES IN 14 DAYS
     Route: 042
     Dates: start: 20120425
  6. PREDNISOLONE [Concomitant]
     Indication: B-CELL LYMPHOMA
     Dosage: 100 MG, QD
     Route: 048
     Dates: start: 20120425
  7. RAMIPRIL [Concomitant]
     Indication: MYOCARDIAL INFARCTION
     Dosage: 2.5 MG, QD
     Route: 048
  8. BISOPROLOL [Concomitant]
     Indication: HYPERTENSION
     Dosage: 2.5 MG, UNK
     Route: 048
  9. BISOPROLOL [Concomitant]
     Indication: MYOCARDIAL INFARCTION
  10. SIMVASTATIN [Concomitant]
     Indication: HYPERLIPIDAEMIA
     Dosage: 40 MG, QD
     Route: 048
  11. MIRTAZAPINE [Concomitant]
     Indication: INSOMNIA
     Dosage: 15 MG, QD
     Route: 048

REACTIONS (2)
  - Polyneuropathy [Not Recovered/Not Resolved]
  - Abasia [Not Recovered/Not Resolved]
